FAERS Safety Report 21643191 (Version 2)
Quarter: 2022Q4

REPORT INFORMATION
  Report Type: Spontaneous
  Country: FR (occurrence: None)
  Receive Date: 20221125
  Receipt Date: 20221220
  Transmission Date: 20230112
  Serious: Yes (Other)
  Sender: FDA-Public Use
  Company Number: 2022A384412

PATIENT
  Age: 89 Year
  Sex: Female

DRUGS (1)
  1. TAGRISSO [Suspect]
     Active Substance: OSIMERTINIB
     Indication: Bronchial carcinoma
     Route: 048
     Dates: start: 20221102

REACTIONS (5)
  - Conjunctivitis [Recovering/Resolving]
  - Skin lesion inflammation [Recovering/Resolving]
  - Actinic keratosis [Unknown]
  - Photosensitivity reaction [Unknown]
  - Folliculitis [Unknown]
